FAERS Safety Report 19711587 (Version 1)
Quarter: 2021Q3

REPORT INFORMATION
  Report Type: Spontaneous
  Country: CA (occurrence: CA)
  Receive Date: 20210816
  Receipt Date: 20210816
  Transmission Date: 20211014
  Serious: Yes (Death)
  Sender: FDA-Public Use
  Company Number: CA-PFIZER INC-202101012296

PATIENT
  Age: 40 Year
  Sex: Male
  Weight: 121 kg

DRUGS (4)
  1. FENTANYL CITRATE. [Suspect]
     Active Substance: FENTANYL CITRATE
     Dosage: UNK
  2. COCAINE [Suspect]
     Active Substance: COCAINE
     Dosage: UNK
  3. GABAPENTIN. [Suspect]
     Active Substance: GABAPENTIN
     Dosage: UNK
  4. METHAMPHETAMINE [METAMFETAMINE] [Suspect]
     Active Substance: METHAMPHETAMINE

REACTIONS (4)
  - Amphetamines positive [Fatal]
  - Opiates positive [Fatal]
  - Toxicity to various agents [Fatal]
  - Postmortem blood drug level [Fatal]
